FAERS Safety Report 12806610 (Version 1)
Quarter: 2016Q4

REPORT INFORMATION
  Report Type: Spontaneous
  Country: US (occurrence: US)
  Receive Date: 20161004
  Receipt Date: 20161004
  Transmission Date: 20170207
  Serious: Yes (Other)
  Sender: FDA-Public Use
  Company Number: US-PFIZER INC-2016459495

PATIENT
  Age: 87 Year
  Sex: Female
  Weight: 70 kg

DRUGS (15)
  1. LEVOXYL [Suspect]
     Active Substance: LEVOTHYROXINE SODIUM
     Indication: THYROID CYST
     Dosage: 50 UG, DAILY
     Route: 048
     Dates: start: 1995
  2. LEVOXYL [Suspect]
     Active Substance: LEVOTHYROXINE SODIUM
     Indication: NODULE
  3. WARFARIN [Concomitant]
     Active Substance: WARFARIN
     Indication: ATRIAL FIBRILLATION
     Dosage: UNK (MON/WED/FRIDAY AT 5MG TABLET ORAL  ONCE DAILY. ON TUES/THURS/SAT/SUNDAY TAKES 1/2 OF A 5MG TAB)
     Route: 048
  4. CENTRUM SILVER [Concomitant]
     Active Substance: MINERALS\VITAMINS
     Dosage: 1 DF, DAILY
     Route: 048
  5. PROTONIX [Concomitant]
     Active Substance: PANTOPRAZOLE SODIUM
     Indication: ULCER
     Dosage: 40 MG, DAILY (EVERY MORNING)
     Route: 048
     Dates: start: 2016
  6. ENALAPRIL [Concomitant]
     Active Substance: ENALAPRIL
     Dosage: 20 MG, 2X/DAY
     Route: 048
  7. SUPER B COMPLEX [Concomitant]
     Active Substance: CYANOCOBALAMIN\DEXPANTHENOL\NIACINAMIDE\PYRIDOXINE HYDROCHLORIDE\RIBOFLAVIN 5^-PHOSPHATE SODIUM\THIAMINE HYDROCHLORIDE\VITAMIN B COMPLEX
     Indication: NEUROPATHY PERIPHERAL
     Dosage: 1 DF, DAILY (ONCE DAILY)
     Route: 048
     Dates: start: 2005
  8. CALCIUM [Concomitant]
     Active Substance: CALCIUM
     Dosage: 1 DF, ALTERNATE DAY
     Route: 048
  9. ATENOLOL. [Concomitant]
     Active Substance: ATENOLOL
     Dosage: EXTRA HALF DOSE OF 25MG
  10. ATENOLOL. [Concomitant]
     Active Substance: ATENOLOL
     Dosage: 50 MG, 2X/DAY(ONE IN THE MORNING AND ONE IN THE EVENING)
     Route: 048
  11. ALPHA LIPOIC ACID [Concomitant]
     Active Substance: .ALPHA.-LIPOIC ACID
     Indication: NEUROPATHY PERIPHERAL
     Dosage: 200 MG, DAILY (ONCE DAILY)
     Route: 048
     Dates: start: 2005
  12. LORAZEPAM. [Concomitant]
     Active Substance: LORAZEPAM
     Indication: ANXIETY
     Dosage: 1 MG, AS NEEDED(1MG TABLET BY MOUTH AS NEEDED AT NIGHT)
     Route: 048
  13. VITAMIN D [Concomitant]
     Active Substance: CHOLECALCIFEROL
     Dosage: 1000 IU, DAILY (ONCE DAILY)
     Route: 048
  14. NATEGLINIDE. [Concomitant]
     Active Substance: NATEGLINIDE
     Indication: DIABETES MELLITUS
     Dosage: 60 MG, 3X/DAY(1/2 TABLET BY MOUTH 15 MINUTES BEFORE EACH MEAL 3 TIMES A DAY)
     Route: 048
  15. VITAMIN B1 [Concomitant]
     Active Substance: THIAMINE HYDROCHLORIDE
     Indication: NEUROPATHY PERIPHERAL
     Dosage: 500 MG, DAILY (PILL 2 PILLS )
     Route: 048
     Dates: start: 2005

REACTIONS (3)
  - Basal cell carcinoma [Not Recovered/Not Resolved]
  - Hearing disability [Not Recovered/Not Resolved]
  - Body height decreased [Unknown]
